FAERS Safety Report 11042360 (Version 2)
Quarter: 2015Q2

REPORT INFORMATION
  Report Type: Spontaneous
  Country: US (occurrence: US)
  Receive Date: 20150416
  Receipt Date: 20150525
  Transmission Date: 20150821
  Serious: No
  Sender: FDA-Public Use
  Company Number: US-JNJFOC-20140700640

PATIENT
  Sex: Male

DRUGS (2)
  1. XARELTO [Suspect]
     Active Substance: RIVAROXABAN
     Indication: CONGENITAL ANOMALY
     Route: 048
  2. XARELTO [Suspect]
     Active Substance: RIVAROXABAN
     Indication: CONGENITAL ANOMALY
     Route: 048

REACTIONS (3)
  - Dizziness [Recovered/Resolved]
  - Hemiparesis [Recovered/Resolved]
  - Off label use [Unknown]
